FAERS Safety Report 18672531 (Version 1)
Quarter: 2020Q4

REPORT INFORMATION
  Report Type: Spontaneous
  Country: CH (occurrence: CH)
  Receive Date: 20201229
  Receipt Date: 20201229
  Transmission Date: 20210114
  Serious: Yes (Other)
  Sender: FDA-Public Use
  Company Number: CH-LUPIN PHARMACEUTICALS INC.-2020-10917

PATIENT
  Age: 24 Year
  Sex: Male

DRUGS (3)
  1. ENOXAPARIN [Concomitant]
     Active Substance: ENOXAPARIN
     Indication: ISCHAEMIC STROKE
     Dosage: UNK
     Route: 065
  2. HYDROXYCHLOROQUINE [Suspect]
     Active Substance: HYDROXYCHLOROQUINE
     Indication: COVID-19
     Dosage: UNK
     Route: 065
  3. ACETYLSALICYLIC ACID [Concomitant]
     Active Substance: ASPIRIN
     Indication: ISCHAEMIC STROKE
     Dosage: UNK
     Route: 065

REACTIONS (1)
  - Off label use [Unknown]
